FAERS Safety Report 6202293-7 (Version None)
Quarter: 2009Q2

REPORT INFORMATION
  Report Type: 
  Country: None (occurrence: None)
  Receive Date: 20090526
  Receipt Date: 20090518
  Transmission Date: 20091009
  Serious: No
  Sender: FDA-Public Use
  Company Number: US-B.I. PHARMACEUTICALS,INC./RIDGEFIELD-2009-BP-06209BP

PATIENT
  Sex: Male

DRUGS (7)
  1. COMBIVENT [Suspect]
     Indication: CHRONIC OBSTRUCTIVE PULMONARY DISEASE
     Route: 055
     Dates: start: 20080501, end: 20090517
  2. COMBIVENT [Suspect]
     Indication: EMPHYSEMA
  3. FLOMAX [Concomitant]
     Indication: BENIGN PROSTATIC HYPERPLASIA
     Dates: start: 20040101
  4. PREVACID [Concomitant]
     Indication: GASTROOESOPHAGEAL REFLUX DISEASE
     Dates: start: 20070101
  5. COZAAR [Concomitant]
     Indication: HYPERTENSION
     Dates: start: 20040101
  6. ATENOLOL [Concomitant]
     Indication: HEART RATE IRREGULAR
     Dates: start: 20040101
  7. ATENOLOL [Concomitant]
     Indication: TACHYCARDIA

REACTIONS (3)
  - DYSPHONIA [None]
  - INCORRECT DOSE ADMINISTERED [None]
  - ORAL CANDIDIASIS [None]
